FAERS Safety Report 24633721 (Version 1)
Quarter: 2024Q4

REPORT INFORMATION
  Report Type: Spontaneous
  Country: US (occurrence: US)
  Receive Date: 20241118
  Receipt Date: 20241118
  Transmission Date: 20250114
  Serious: No
  Sender: BAUSCH AND LOMB
  Company Number: US-BAUSCHBL-2024BNL037272

PATIENT
  Age: 81 Year
  Sex: Female

DRUGS (2)
  1. LUMIFY [Suspect]
     Active Substance: BRIMONIDINE TARTRATE
     Indication: Ocular hyperaemia
     Dosage: 1 DROP IN EACH EYE IN THE MORNING
     Route: 047
  2. LUMIFY [Suspect]
     Active Substance: BRIMONIDINE TARTRATE
     Dosage: 1 DROP IN EACH EYE IN THE MORNING AND SOMETIMES IN THE EVENING
     Route: 047

REACTIONS (3)
  - Limb injury [Unknown]
  - Wrong technique in product usage process [Unknown]
  - Product container seal issue [Unknown]
